FAERS Safety Report 6287034-X (Version None)
Quarter: 2009Q3

REPORT INFORMATION
  Report Type: 
  Country: None (occurrence: None)
  Receive Date: 20090728
  Receipt Date: 20090720
  Transmission Date: 20100115
  Serious: Yes (Disabling)
  Sender: FDA-Public Use
  Company Number: US-ASTRAZENECA-2009SE05392

PATIENT
  Age: 47 Year
  Sex: Male

DRUGS (1)
  1. XYLOCAINE [Suspect]
     Indication: MUSCULOSKELETAL PAIN
     Route: 014
     Dates: start: 20031030

REACTIONS (2)
  - JOINT INJURY [None]
  - MUSCULOSKELETAL PAIN [None]
